FAERS Safety Report 8377042-7 (Version None)
Quarter: 2012Q2

REPORT INFORMATION
  Report Type: 
  Country: None (occurrence: None)
  Receive Date: 20120522
  Receipt Date: 20120516
  Transmission Date: 20120825
  Serious: Yes (Other)
  Sender: FDA-Public Use
  Company Number: US-ROCHE-1069968

PATIENT
  Sex: Female
  Weight: 62.198 kg

DRUGS (2)
  1. XELODA [Suspect]
     Indication: BREAST CANCER METASTATIC
     Route: 048
     Dates: start: 20120513
  2. ZOMETA [Concomitant]
     Route: 042
     Dates: start: 20120513

REACTIONS (1)
  - TUMOUR ASSOCIATED FEVER [None]
